FAERS Safety Report 15858806 (Version 1)
Quarter: 2019Q1

REPORT INFORMATION
  Report Type: Spontaneous
  Country: FR (occurrence: FR)
  Receive Date: 20190123
  Receipt Date: 20190123
  Transmission Date: 20190417
  Serious: Yes (Hospitalization)
  Sender: FDA-Public Use
  Company Number: FR-BAYER-2019-015731

PATIENT
  Age: 88 Year
  Sex: Female
  Weight: 54 kg

DRUGS (2)
  1. ASPIRINE PROTECT 100 MG [Suspect]
     Active Substance: ASPIRIN
     Indication: ARRHYTHMIA
     Dosage: 100 MG
     Route: 048
  2. PLAVIX [Suspect]
     Active Substance: CLOPIDOGREL BISULFATE
     Indication: ARRHYTHMIA
     Dosage: UNK
     Route: 048

REACTIONS (2)
  - Subdural haematoma [Recovering/Resolving]
  - Fall [Recovered/Resolved]

NARRATIVE: CASE EVENT DATE: 20181022
